FAERS Safety Report 14363469 (Version 2)
Quarter: 2018Q1

REPORT INFORMATION
  Report Type: Report from Study
  Country: GB (occurrence: GB)
  Receive Date: 20180108
  Receipt Date: 20180206
  Transmission Date: 20180509
  Serious: Yes (Other)
  Sender: FDA-Public Use
  Company Number: GB-JNJFOC-20180102722

PATIENT
  Age: 64 Year
  Sex: Male
  Weight: 103 kg

DRUGS (7)
  1. METHOTREXATE. [Suspect]
     Active Substance: METHOTREXATE
     Indication: PSORIASIS
     Route: 058
     Dates: start: 2007, end: 2009
  2. LISINOPRIL. [Concomitant]
     Active Substance: LISINOPRIL
     Indication: HYPERTENSION
     Route: 048
     Dates: start: 2006
  3. LANSOPRAZOLE. [Concomitant]
     Active Substance: LANSOPRAZOLE
     Indication: GASTROINTESTINAL HAEMORRHAGE
     Route: 048
  4. FOLIC ACID. [Concomitant]
     Active Substance: FOLIC ACID
     Indication: LIVER DISORDER
     Route: 048
  5. STELARA [Suspect]
     Active Substance: USTEKINUMAB
     Indication: PSORIASIS
     Route: 058
     Dates: start: 20110531
  6. STELARA [Suspect]
     Active Substance: USTEKINUMAB
     Indication: PSORIASIS
     Route: 058
     Dates: start: 20091206
  7. CODEINE [Concomitant]
     Active Substance: CODEINE
     Indication: MIGRAINE
     Route: 048

REACTIONS (6)
  - Lipomatosis [Unknown]
  - Hernia [Unknown]
  - Hepatic cirrhosis [Not Recovered/Not Resolved]
  - Gastric ulcer [Unknown]
  - Weight increased [Unknown]
  - Duodenitis [Unknown]

NARRATIVE: CASE EVENT DATE: 201501
